FAERS Safety Report 7103697 (Version 2)
Quarter: 2013Q1

REPORT INFORMATION
  Report Type: Report from Study
  Country: BR (occurrence: BR)
  Receive Date: 20090902
  Receipt Date: 20130128
  Transmission Date: 20140127
  Serious: Yes (Hospitalization, Other)
  Sender: FDA-Public Use
  Company Number: BR-ABBOTT-09P-020-0594399-00

PATIENT
  Age: 41 None
  Sex: Female
  Weight: 80 kg

DRUGS (6)
  1. HUMIRA 40 MG/ 0.8 ML PRE-FILLED SYRINGE [Suspect]
     Indication: RHEUMATOID ARTHRITIS
     Route: 058
     Dates: start: 20081020
  2. HUMIRA 40 MG/ 0.8 ML PRE-FILLED SYRINGE [Suspect]
     Route: 058
  3. METHOTREXATE [Concomitant]
     Indication: RHEUMATOID ARTHRITIS
     Dosage: TWICE WEEKLY
     Route: 048
     Dates: start: 2006
  4. PREDNISONE [Concomitant]
     Indication: RHEUMATOID ARTHRITIS
  5. FOLIC ACID [Concomitant]
     Indication: RHEUMATOID ARTHRITIS
     Route: 048
     Dates: start: 2006
  6. CALCIUM [Concomitant]
     Indication: RHEUMATOID ARTHRITIS
     Route: 048
     Dates: start: 2006

REACTIONS (8)
  - Bone erosion [Recovered/Resolved]
  - Rheumatic disorder [Recovered/Resolved]
  - Postoperative wound infection [Recovered/Resolved]
  - Pain in extremity [Recovered/Resolved]
  - Local swelling [Recovered/Resolved]
  - Tendon disorder [Unknown]
  - Procedural site reaction [Recovered/Resolved]
  - Wrong technique in drug usage process [Unknown]
